FAERS Safety Report 8984162 (Version 1)
Quarter: 2012Q4

REPORT INFORMATION
  Report Type: 
  Country: US (occurrence: US)
  Receive Date: 20121226
  Receipt Date: 20121226
  Transmission Date: 20130627
  Serious: No
  Sender: FDA-Public Use
  Company Number: US-009507513-1212USA006423

PATIENT
  Sex: Male

DRUGS (2)
  1. AZASITE [Suspect]
     Dosage: 2 drops,twice a day
     Route: 047
     Dates: start: 20121203, end: 20121204
  2. AZASITE [Suspect]
     Dosage: 2 drops, daily
     Route: 047
     Dates: start: 20121205

REACTIONS (3)
  - Drug dose omission [Unknown]
  - Product quality issue [Unknown]
  - No adverse event [Unknown]
